FAERS Safety Report 15292741 (Version 1)
Quarter: 2018Q3

REPORT INFORMATION
  Report Type: Spontaneous
  Country: US (occurrence: US)
  Receive Date: 20180806
  Receipt Date: 20180806
  Transmission Date: 20181010
  Serious: Yes (Other)
  Sender: FDA-Public Use
  Company Number: None

PATIENT
  Age: 58 Year
  Sex: Female
  Weight: 76.5 kg

DRUGS (3)
  1. ALLI [Suspect]
     Active Substance: ORLISTAT
     Indication: WEIGHT DECREASED
     Dosage: ?          QUANTITY:120 CAPSULE(S);?
     Route: 048
     Dates: start: 20180608, end: 20180720
  2. ESTRADIOL. [Concomitant]
     Active Substance: ESTRADIOL
  3. MULTIVITAMIN [Concomitant]
     Active Substance: VITAMINS

REACTIONS (4)
  - Skin reaction [None]
  - Rash [None]
  - Urticaria [None]
  - Liver injury [None]

NARRATIVE: CASE EVENT DATE: 20180608
